FAERS Safety Report 8815720 (Version 2)
Quarter: 2015Q1

REPORT INFORMATION
  Report Type: Report from Study
  Country: US (occurrence: US)
  Receive Date: 20120928
  Receipt Date: 20150203
  Transmission Date: 20150721
  Serious: Yes (Death)
  Sender: FDA-Public Use
  Company Number: US-ROCHE-1129703

PATIENT
  Sex: Male

DRUGS (7)
  1. HERCEPTIN [Suspect]
     Active Substance: TRASTUZUMAB
     Indication: LUNG NEOPLASM MALIGNANT
     Dosage: LOADING DOSE
     Route: 042
     Dates: start: 19990830
  2. GLIBENCLAMIDE [Concomitant]
     Active Substance: GLYBURIDE
     Route: 065
  3. HERCEPTIN [Suspect]
     Active Substance: TRASTUZUMAB
     Indication: NON-SMALL CELL LUNG CANCER
     Dosage: MAINTENANCE DOSE
     Route: 042
  4. GLUCOPHAGE [Concomitant]
     Active Substance: METFORMIN HYDROCHLORIDE
     Route: 065
  5. GEMCITABINE [Concomitant]
     Active Substance: GEMCITABINE\GEMCITABINE HYDROCHLORIDE
     Dosage: 7 CYCLES
     Route: 065
  6. NAVELBINE [Concomitant]
     Active Substance: VINORELBINE TARTRATE
  7. CARBOPLATINUM [Concomitant]
     Active Substance: CARBOPLATIN
     Dosage: 7 CYCLES
     Route: 065

REACTIONS (3)
  - Dyspnoea exertional [Unknown]
  - Death [Fatal]
  - Off label use [Unknown]
